FAERS Safety Report 14413262 (Version 1)
Quarter: 2018Q1

REPORT INFORMATION
  Report Type: Spontaneous
  Country: PK (occurrence: PK)
  Receive Date: 20180119
  Receipt Date: 20180119
  Transmission Date: 20180509
  Serious: Yes (Hospitalization, Other)
  Sender: FDA-Public Use
  Company Number: PK-GLAXOSMITHKLINE-PK2018GSK006961

PATIENT
  Sex: Female

DRUGS (1)
  1. ZANTAC [Suspect]
     Active Substance: RANITIDINE HYDROCHLORIDE
     Indication: PRODUCT USED FOR UNKNOWN INDICATION
     Dosage: UNK

REACTIONS (6)
  - Abortion induced [Unknown]
  - Hypotension [Unknown]
  - Exposure during pregnancy [Unknown]
  - Foetal growth restriction [Unknown]
  - Pruritus generalised [Unknown]
  - Foetal death [Unknown]
